FAERS Safety Report 6941779-4 (Version None)
Quarter: 2010Q3

REPORT INFORMATION
  Report Type: 
  Country: None (occurrence: None)
  Receive Date: 20100826
  Receipt Date: 20100818
  Transmission Date: 20110219
  Serious: Yes (Hospitalization)
  Sender: FDA-Public Use
  Company Number: US-BIOGENIDEC-2010BI028803

PATIENT
  Sex: Female

DRUGS (2)
  1. TYSABRI [Suspect]
     Indication: MULTIPLE SCLEROSIS
     Route: 042
     Dates: start: 20041229, end: 20050223
  2. TYSABRI [Suspect]
     Route: 042
     Dates: start: 20070110, end: 20090928

REACTIONS (2)
  - BLADDER SPASM [None]
  - CYSTITIS [None]
